FAERS Safety Report 16965660 (Version 2)
Quarter: 2019Q4

REPORT INFORMATION
  Report Type: Spontaneous
  Country: MY (occurrence: MY)
  Receive Date: 20191028
  Receipt Date: 20191114
  Transmission Date: 20200122
  Serious: Yes (Life-Threatening, Hospitalization, Other)
  Sender: FDA-Public Use
  Company Number: MY-PFIZER INC-2019461569

PATIENT
  Age: 30 Year
  Sex: Female

DRUGS (1)
  1. ZYVOX [Suspect]
     Active Substance: LINEZOLID
     Indication: SKIN INFECTION
     Dosage: 600 MG, 2X/DAY
     Route: 048

REACTIONS (3)
  - Loss of consciousness [Unknown]
  - Anaphylactic shock [Unknown]
  - Blood pressure decreased [Unknown]
